FAERS Safety Report 12749984 (Version 1)
Quarter: 2016Q3

REPORT INFORMATION
  Report Type: Spontaneous
  Country: US (occurrence: US)
  Receive Date: 20160915
  Receipt Date: 20160915
  Transmission Date: 20161109
  Serious: Yes (Hospitalization)
  Sender: FDA-Public Use
  Company Number: None

PATIENT
  Age: 80 Year
  Sex: Male
  Weight: 74.8 kg

DRUGS (17)
  1. AMLODIPINE [Concomitant]
     Active Substance: AMLODIPINE BESYLATE
  2. REFRESH PLUS EYE LUBRICANT [Concomitant]
  3. OMEPRAZOLE. [Concomitant]
     Active Substance: OMEPRAZOLE
  4. LOPRESSOR [Concomitant]
     Active Substance: METOPROLOL TARTRATE
  5. IPRATROPIUM [Concomitant]
     Active Substance: IPRATROPIUM
  6. BISACODYL. [Concomitant]
     Active Substance: BISACODYL
  7. ALBUTEROL. [Concomitant]
     Active Substance: ALBUTEROL
  8. DASATINIB [Suspect]
     Active Substance: DASATINIB
  9. PREDNISONE. [Concomitant]
     Active Substance: PREDNISONE
  10. GABAPENTIN. [Concomitant]
     Active Substance: GABAPENTIN
  11. VARDENAFIL [Concomitant]
     Active Substance: VARDENAFIL
  12. DOCUSATE [Concomitant]
     Active Substance: DOCUSATE
  13. KETOLIFEN [Concomitant]
  14. LORATIDINE [Concomitant]
     Active Substance: LORATADINE
  15. TAMSULOSIN [Concomitant]
     Active Substance: TAMSULOSIN
  16. FINASTERIDE. [Concomitant]
     Active Substance: FINASTERIDE
  17. CARBOXMETHYCELLULOSE [Concomitant]

REACTIONS (2)
  - Pneumonia [None]
  - Fatigue [None]

NARRATIVE: CASE EVENT DATE: 20160822
